FAERS Safety Report 7950447-1 (Version None)
Quarter: 2011Q4

REPORT INFORMATION
  Report Type: 
  Country: None (occurrence: None)
  Receive Date: 20111130
  Receipt Date: 20111130
  Transmission Date: 20120403
  Serious: Yes (Other)
  Sender: FDA-Public Use
  Company Number: GB-ROCHE-1013727

PATIENT
  Age: 48 Year
  Sex: Male

DRUGS (5)
  1. IRINOTECAN HCL [Suspect]
     Indication: GASTROINTESTINAL CARCINOMA
  2. OXALIPLATIN [Suspect]
     Indication: GASTROINTESTINAL CARCINOMA
  3. AVASTIN [Suspect]
     Indication: GASTROINTESTINAL CARCINOMA
  4. CAPECITABINE [Suspect]
     Indication: GASTROINTESTINAL CARCINOMA
  5. FLUOROURACIL [Suspect]
     Indication: GASTROINTESTINAL CARCINOMA

REACTIONS (4)
  - COLON CANCER METASTATIC [None]
  - DISEASE PROGRESSION [None]
  - HAND FRACTURE [None]
  - CARCINOEMBRYONIC ANTIGEN INCREASED [None]
